FAERS Safety Report 5525852-3 (Version None)
Quarter: 2007Q4

REPORT INFORMATION
  Report Type: 
  Country: None (occurrence: None)
  Receive Date: 20071126
  Receipt Date: 20071119
  Transmission Date: 20080405
  Serious: Yes (Hospitalization)
  Sender: FDA-Public Use
  Company Number: IT-AVENTIS-200715206EU

PATIENT
  Age: 61 Year
  Sex: Female

DRUGS (6)
  1. FUROSEMIDE [Suspect]
     Indication: DRUG USE FOR UNKNOWN INDICATION
     Dosage: DOSE: UNK
     Dates: start: 20050301, end: 20050301
  2. KANRENOL [Concomitant]
  3. GABAPENTIN [Concomitant]
  4. ROCALTROL [Concomitant]
  5. CONGESCOR [Concomitant]
  6. ZYLORIC [Concomitant]

REACTIONS (1)
  - CARDIAC FAILURE [None]
